FAERS Safety Report 6679356-5 (Version None)
Quarter: 2010Q2

REPORT INFORMATION
  Report Type: 
  Country: None (occurrence: None)
  Receive Date: 20100413
  Receipt Date: 20100407
  Transmission Date: 20101027
  Serious: Yes (Death, Hospitalization)
  Sender: FDA-Public Use
  Company Number: JP-ROCHE-597747

PATIENT
  Sex: Female
  Weight: 56 kg

DRUGS (18)
  1. TOCILIZUMAB [Suspect]
     Indication: RHEUMATOID ARTHRITIS
     Route: 041
     Dates: start: 20080910, end: 20080910
  2. TOCILIZUMAB [Suspect]
     Route: 041
     Dates: start: 20081008, end: 20081008
  3. TOCILIZUMAB [Suspect]
     Route: 041
     Dates: start: 20081218, end: 20081218
  4. TOCILIZUMAB [Suspect]
     Route: 041
     Dates: start: 20090115, end: 20090115
  5. TOCILIZUMAB [Suspect]
     Route: 041
     Dates: start: 20090220, end: 20090220
  6. TOCILIZUMAB [Suspect]
     Route: 041
     Dates: start: 20090317, end: 20090317
  7. TOCILIZUMAB [Suspect]
     Route: 041
     Dates: start: 20090415
  8. PREDONINE [Suspect]
     Indication: RHEUMATOID ARTHRITIS
     Route: 048
  9. RIMATIL [Concomitant]
     Route: 048
  10. MAGMITT [Concomitant]
     Route: 048
  11. DILTIAZEM HYDROCHLORIDE [Concomitant]
     Dosage: FORM: SUSTAINED RELEASE CAPSULE
     Route: 048
  12. MEVALOTIN [Concomitant]
     Route: 048
  13. CANDESARTAN CILEXETIL [Concomitant]
     Route: 048
  14. ASPIRIN [Concomitant]
     Dosage: FORM: ENTERIC COATING DRUG
     Route: 048
  15. FAMOTIDINE [Concomitant]
     Route: 048
  16. ONEALFA [Concomitant]
     Route: 048
  17. ALENDRONATE SODIUM [Concomitant]
     Dosage: DRUG REPORTED AS FOSAMAC 35MG
     Route: 048
  18. HYPEN [Concomitant]
     Route: 048

REACTIONS (3)
  - ABSCESS LIMB [None]
  - DEATH [None]
  - HERPES ZOSTER [None]
